FAERS Safety Report 11101406 (Version 2)
Quarter: 2015Q2

REPORT INFORMATION
  Report Type: Spontaneous
  Country: US (occurrence: US)
  Receive Date: 20150508
  Receipt Date: 20150520
  Transmission Date: 20150821
  Serious: Yes (Other)
  Sender: FDA-Public Use
  Company Number: US-JAZZ-2015-US-006508

PATIENT
  Sex: Female

DRUGS (4)
  1. LUVOX CR [Suspect]
     Active Substance: FLUVOXAMINE MALEATE
     Indication: OBSESSIVE-COMPULSIVE DISORDER
     Dosage: 150 MG, QD
     Route: 048
  2. HALOPERIDOL. [Suspect]
     Active Substance: HALOPERIDOL
     Indication: OBSESSIVE-COMPULSIVE DISORDER
     Dosage: 10 MG, QD
     Route: 048
  3. BENZTROPINE MESILATE [Concomitant]
     Active Substance: BENZTROPINE MESYLATE
     Indication: PRODUCT USED FOR UNKNOWN INDICATION
     Dosage: 0.5 MG, BID
  4. HALOPERIDOL. [Suspect]
     Active Substance: HALOPERIDOL
     Dosage: 200 MG, EVERY FOUR WEEKS
     Route: 030

REACTIONS (4)
  - Drug interaction [Unknown]
  - Cognitive disorder [Unknown]
  - Dementia [Unknown]
  - Extrapyramidal disorder [Unknown]
